FAERS Safety Report 7061069-1 (Version None)
Quarter: 2010Q4

REPORT INFORMATION
  Report Type: 
  Country: None (occurrence: None)
  Receive Date: 20101026
  Receipt Date: 20101014
  Transmission Date: 20110411
  Serious: Yes (Hospitalization, Other)
  Sender: FDA-Public Use
  Company Number: US-PFIZER INC-2010130932

PATIENT
  Sex: Female
  Weight: 88.435 kg

DRUGS (16)
  1. GEODON [Suspect]
     Indication: MENTAL IMPAIRMENT
     Dosage: 80 MG, 2X/DAY
     Route: 048
  2. GLIMEPIRIDE [Concomitant]
     Dosage: 1 MG, 1X/DAY
     Route: 048
  3. ZOLPIDEM [Concomitant]
     Dosage: 10 MG, 1X/DAY
     Route: 048
  4. COLESTYRAMINE [Concomitant]
     Dosage: 9 G, 1X/DAY
     Route: 048
  5. AVANDIA [Concomitant]
     Dosage: 4 MG, 1X/DAY
     Route: 048
  6. PLAVIX [Concomitant]
     Dosage: 75 MG, 1X/DAY
     Route: 048
  7. NEXIUM [Concomitant]
     Dosage: 40 MG, 1X/DAY
     Route: 048
  8. KLOR-CON [Concomitant]
     Indication: SUPPLEMENTATION THERAPY
     Dosage: 30 MG, 2X/DAY
     Route: 048
  9. SUCRALFATE [Concomitant]
     Dosage: 1 G, 3X/DAY
     Route: 048
  10. GABAPENTIN [Concomitant]
     Indication: LIMB DISCOMFORT
     Dosage: 300 MG, 2X/DAY
     Route: 048
  11. PROPRANOLOL [Concomitant]
     Indication: HYPERTENSION
     Dosage: 60 MG, 2X/DAY
     Route: 048
  12. LASIX [Concomitant]
     Dosage: UNK MG, 2X/DAY
     Route: 048
  13. BENICAR [Concomitant]
     Dosage: 40 MG, 1X/DAY
     Route: 048
  14. IRON [Concomitant]
     Indication: SUPPLEMENTATION THERAPY
     Dosage: UNK MG, 2X/DAY
     Route: 048
  15. MULTI-VITAMINS [Concomitant]
     Indication: SUPPLEMENTATION THERAPY
     Dosage: UNK, 1X/DAY
     Route: 048
  16. VITAMIN B-12 [Concomitant]
     Dosage: 100 MG, 1X/DAY

REACTIONS (3)
  - DRUG INEFFECTIVE [None]
  - SOMNOLENCE [None]
  - TACHYPHRENIA [None]
